FAERS Safety Report 6192810-8 (Version None)
Quarter: 2009Q2

REPORT INFORMATION
  Report Type: 
  Country: None (occurrence: None)
  Receive Date: 20090518
  Receipt Date: 20090512
  Transmission Date: 20091009
  Serious: Yes (Death)
  Sender: FDA-Public Use
  Company Number: DK-ASTRAZENECA-2009SE01284

PATIENT
  Sex: Female

DRUGS (10)
  1. SEROQUEL [Suspect]
     Indication: PROPHYLAXIS
     Route: 048
     Dates: start: 20030301, end: 20031001
  2. SEROQUEL [Suspect]
     Dosage: 50 MG IN THE MORNING AND 100 MG IN THE EVENING
     Route: 048
     Dates: start: 20031001, end: 20060901
  3. SEROQUEL [Suspect]
     Dosage: 25 MG IN THE MORNING AND 50 MG FOR THE NIGHT
     Route: 048
     Dates: start: 20060901, end: 20070101
  4. SEROQUEL [Suspect]
     Route: 048
     Dates: start: 20070101, end: 20080101
  5. SEROQUEL [Suspect]
     Route: 048
     Dates: start: 20080101, end: 20080101
  6. SEROQUEL [Suspect]
     Route: 048
     Dates: start: 20080101
  7. EXELON [Suspect]
     Dates: start: 20030501
  8. NORTRIPTYLINE HCL [Concomitant]
     Indication: DEPRESSION
  9. NORTRIPTYLINE HCL [Concomitant]
     Indication: SENILE DEMENTIA
  10. ARICEPT [Concomitant]
     Dates: start: 20040101

REACTIONS (4)
  - ABDOMINAL DISCOMFORT [None]
  - DEATH [None]
  - DIZZINESS [None]
  - HYPOTENSION [None]
